FAERS Safety Report 10475975 (Version 1)
Quarter: 2014Q3

REPORT INFORMATION
  Report Type: Spontaneous
  Country: US (occurrence: US)
  Receive Date: 20140925
  Receipt Date: 20140925
  Transmission Date: 20150326
  Serious: No
  Sender: FDA-Public Use
  Company Number: US-GLAXOSMITHKLINE-A1081069A

PATIENT
  Age: 81 Year
  Sex: Female

DRUGS (3)
  1. PERFOROMIST [Concomitant]
     Active Substance: FORMOTEROL FUMARATE DIHYDRATE
  2. SEREVENT [Suspect]
     Active Substance: SALMETEROL XINAFOATE
     Route: 055
     Dates: start: 20140112
  3. OXYGEN. [Concomitant]
     Active Substance: OXYGEN

REACTIONS (4)
  - Vaginal disorder [Unknown]
  - Bladder disorder [Unknown]
  - Adrenal mass [Unknown]
  - Renal disorder [Unknown]

NARRATIVE: CASE EVENT DATE: 2014
